FAERS Safety Report 17553142 (Version 1)
Quarter: 2020Q1

REPORT INFORMATION
  Report Type: Other
  Country: NL (occurrence: NL)
  Receive Date: 20200318
  Receipt Date: 20200318
  Transmission Date: 20200409
  Serious: Yes (Life-Threatening, Hospitalization)
  Sender: FDA-Public Use
  Company Number: NL-CELLTRION INC.-2020NL020650

PATIENT

DRUGS (15)
  1. RITUXIMAB (UNKNOWN) [Suspect]
     Active Substance: RITUXIMAB
     Indication: PEMPHIGOID
     Dosage: INFUUS, 1 MG/MG (MILLIGRAM PER MILLIGRAM), OP 30.7.19 EN 13.8.19 TOEGEDIEND PER INFUUS, 2X1000 MG
     Dates: start: 20190730
  2. HYALURONZUUR/CARBOMEER [Concomitant]
     Dosage: OOGDRUPPELS, 0,15/0,15 MG/ML (MILLIGRAM PER MILLILITER)
  3. TIMOLOL/BIMATOPROST [Concomitant]
     Dosage: OOGDRUPPELS, 5/0,3 MG/ML (MILLIGRAM PER MILLILITER)
  4. SALBUTAMOL [Concomitant]
     Active Substance: ALBUTEROL
     Dosage: 4 DD 1
  5. ENALAPRIL [Concomitant]
     Active Substance: ENALAPRIL
     Dosage: TABLET, 10 MG (MILLIGRAM)
  6. DEXAMETHASON [DEXAMETHASONE] [Concomitant]
     Active Substance: DEXAMETHASONE
     Dosage: 1DD1
  7. ACLIDINIUM;FORMOTEROL [Concomitant]
     Dosage: 340/12 UG 1 DD 2
  8. ATORVASTATINE [ATORVASTATIN] [Concomitant]
     Active Substance: ATORVASTATIN
     Dosage: 1 DD 1
  9. PREDNISOLON [PREDNISOLONE] [Concomitant]
     Active Substance: PREDNISOLONE
     Dosage: TABLET, 20 MG (MILLIGRAM)
  10. ALGELDRAAT/MAGNESIUMHYDROXIDE [Concomitant]
     Dosage: SUSPENSIE, 40/20 MG/ML (MILLIGRAM PER MILLILITER)
  11. FORMOTEROL [Concomitant]
     Active Substance: FORMOTEROL
     Dosage: INHALATIEPOEDER, 6 UG/DOSIS (MICROGRAM PER DOSIS)
  12. PARACETAMOL [Concomitant]
     Active Substance: ACETAMINOPHEN
     Dosage: TABLET, 500 MG (MILLIGRAM)
  13. FOLIUMZUUR [Concomitant]
     Active Substance: FOLIC ACID
     Dosage: TABLET, 0,5 MG (MILLIGRAM)
  14. HYDROCHLOORTHIAZIDE [Concomitant]
     Active Substance: HYDROCHLOROTHIAZIDE
     Dosage: TABLET, 12,5 MG (MILLIGRAM)
  15. MAGNESIUMHYDROXIDE [Concomitant]
     Dosage: KAUWTABLET, 724 MG (MILLIGRAM)

REACTIONS (2)
  - Pulmonary embolism [Recovered/Resolved]
  - Product use in unapproved indication [Unknown]

NARRATIVE: CASE EVENT DATE: 20190730
